FAERS Safety Report 24912821 (Version 1)
Quarter: 2025Q1

REPORT INFORMATION
  Report Type: Spontaneous
  Country: RO (occurrence: RO)
  Receive Date: 20250131
  Receipt Date: 20250131
  Transmission Date: 20250409
  Serious: Yes (Other)
  Sender: NOVITIUM PHARMA
  Company Number: RO-NOVITIUMPHARMA-2025RONVP00268

PATIENT
  Age: 33 Year
  Sex: Male

DRUGS (2)
  1. PREDNISONE [Suspect]
     Active Substance: PREDNISONE
     Indication: Parotitis
  2. PREDNISONE [Suspect]
     Active Substance: PREDNISONE
     Indication: Lymphadenopathy

REACTIONS (1)
  - Central serous chorioretinopathy [Recovered/Resolved]
